FAERS Safety Report 19676933 (Version 1)
Quarter: 2021Q3

REPORT INFORMATION
  Report Type: Spontaneous
  Country: US (occurrence: US)
  Receive Date: 20210809
  Receipt Date: 20210809
  Transmission Date: 20211014
  Serious: Yes (Death)
  Sender: FDA-Public Use
  Company Number: US-ASTRAZENECA-2021A668987

PATIENT
  Age: 24991 Day
  Sex: Female

DRUGS (1)
  1. TAGRISSO [Suspect]
     Active Substance: OSIMERTINIB
     Indication: LUNG NEOPLASM MALIGNANT
     Route: 048
     Dates: start: 2020, end: 20200416

REACTIONS (5)
  - Fat tissue decreased [Unknown]
  - Death [Fatal]
  - General physical health deterioration [Unknown]
  - Fluid intake reduced [Unknown]
  - Hypophagia [Unknown]

NARRATIVE: CASE EVENT DATE: 20200417
